FAERS Safety Report 16056910 (Version 1)
Quarter: 2019Q1

REPORT INFORMATION
  Report Type: Spontaneous
  Country: CN (occurrence: CN)
  Receive Date: 20190311
  Receipt Date: 20190311
  Transmission Date: 20190418
  Serious: Yes (Other)
  Sender: FDA-Public Use
  Company Number: CN-ROCHE-2263777

PATIENT
  Age: 47 Year
  Sex: Male

DRUGS (4)
  1. XELODA [Suspect]
     Active Substance: CAPECITABINE
     Indication: TUMOUR PERFORATION
  2. OXALIPLATIN. [Concomitant]
     Active Substance: OXALIPLATIN
     Indication: ADENOCARCINOMA OF COLON
     Route: 065
     Dates: start: 20161226, end: 20170209
  3. OXALIPLATIN. [Concomitant]
     Active Substance: OXALIPLATIN
     Indication: TUMOUR PERFORATION
  4. XELODA [Suspect]
     Active Substance: CAPECITABINE
     Indication: ADENOCARCINOMA OF COLON
     Route: 065
     Dates: start: 20161226, end: 20170209

REACTIONS (2)
  - Hydronephrosis [Unknown]
  - Drug ineffective [Unknown]
